FAERS Safety Report 5835286-X (Version None)
Quarter: 2008Q3

REPORT INFORMATION
  Report Type: 
  Country: None (occurrence: None)
  Receive Date: 20080806
  Receipt Date: 20080728
  Transmission Date: 20090109
  Serious: Yes (Disabling)
  Sender: FDA-Public Use
  Company Number: ES-WATSON-2008-04575

PATIENT
  Sex: Male

DRUGS (3)
  1. TRELSTAR LA (WITH CLIP'N'JECT) (WATSON LABORATORIES) [Suspect]
     Indication: PROSTATE CANCER
     Dosage: 11.25 MG, 1 IN 3 MONTHS
     Route: 030
     Dates: start: 19980101
  2. CASODEX [Concomitant]
     Indication: PROSTATE CANCER
     Dosage: 50 MG, DAILY
     Route: 065
     Dates: start: 19980101, end: 20080101
  3. CELEBREX [Concomitant]
     Indication: DRUG USE FOR UNKNOWN INDICATION
     Dosage: 200 MG, PRN

REACTIONS (2)
  - MUSCULAR WEAKNESS [None]
  - MYALGIA [None]
